FAERS Safety Report 10062152 (Version 3)
Quarter: 2014Q3

REPORT INFORMATION
  Report Type: Spontaneous
  Country: BR (occurrence: BR)
  Receive Date: 20140407
  Receipt Date: 20140806
  Transmission Date: 20150326
  Serious: Yes (Other)
  Sender: FDA-Public Use
  Company Number: BR-PFIZER INC-2014072761

PATIENT
  Age: 62 Year
  Sex: Female
  Weight: 50 kg

DRUGS (8)
  1. FRONTAL [Suspect]
     Active Substance: ALPRAZOLAM
     Indication: INSOMNIA
     Dosage: 2 MG, 1X/DAY
     Route: 048
     Dates: start: 201402, end: 2014
  2. ZOLOFT [Suspect]
     Active Substance: SERTRALINE HYDROCHLORIDE
     Indication: SLEEP DISORDER
     Dosage: 1 TABLET OF STRENGTH 50 MG, 1X/DAY
     Route: 048
  3. ZOLOFT [Suspect]
     Active Substance: SERTRALINE HYDROCHLORIDE
     Dosage: UNK
     Route: 048
     Dates: start: 2014
  4. FRONTAL [Suspect]
     Active Substance: ALPRAZOLAM
     Dosage: 1 TABLET, 2X/DAY
     Route: 048
     Dates: start: 2014, end: 2014
  5. ZOLOFT [Suspect]
     Active Substance: SERTRALINE HYDROCHLORIDE
     Indication: INSOMNIA
     Dosage: 75 MG, 1X/DAY (IN THE MORNING)
     Route: 048
     Dates: start: 201402, end: 2014
  6. LIVOLON [Concomitant]
     Active Substance: TIBOLONE
     Indication: HORMONE REPLACEMENT THERAPY
     Dosage: UNK
  7. FRONTAL [Suspect]
     Active Substance: ALPRAZOLAM
     Dosage: 1.5 G, DAILY
     Route: 048
     Dates: start: 201402
  8. FRONTAL [Suspect]
     Active Substance: ALPRAZOLAM
     Indication: SLEEP DISORDER
     Dosage: 0.25 NO UNITS PROVIDED, UNK
     Route: 048
     Dates: start: 2013

REACTIONS (10)
  - Physical assault [Unknown]
  - Hyperhidrosis [Unknown]
  - Fear [Unknown]
  - Palpitations [Unknown]
  - Blood pressure fluctuation [Unknown]
  - Panic attack [Unknown]
  - Somnolence [Unknown]
  - Confusional state [Unknown]
  - Fibromyalgia [Unknown]
  - Drug ineffective [Unknown]

NARRATIVE: CASE EVENT DATE: 2014
